FAERS Safety Report 5218588-X (Version None)
Quarter: 2007Q1

REPORT INFORMATION
  Report Type: 
  Country: None (occurrence: None)
  Receive Date: 20061130
  Receipt Date: 20060814
  Transmission Date: 20070707
  Serious: Yes (Hospitalization)
  Sender: FDA-Public Use
  Company Number: US200606000597

PATIENT
  Age: 38 Year
  Sex: Female
  Weight: 108.4 kg

DRUGS (3)
  1. ZYPREXA [Suspect]
     Dosage: 5 MG
     Dates: start: 19991021
  2. ZOLOFT [Concomitant]
  3. COREG [Concomitant]

REACTIONS (4)
  - CARDIAC FAILURE [None]
  - DIABETES MELLITUS [None]
  - HYPERTENSION [None]
  - METABOLIC DISORDER [None]
